FAERS Safety Report 25084622 (Version 3)
Quarter: 2025Q2

REPORT INFORMATION
  Report Type: Report from Study
  Country: JP (occurrence: JP)
  Receive Date: 20250317
  Receipt Date: 20250602
  Transmission Date: 20250716
  Serious: Yes (Hospitalization, Other)
  Sender: ROCHE
  Company Number: JP-CHUGAI-2024030978

PATIENT
  Age: 79 Year
  Sex: Male

DRUGS (3)
  1. PIASKY [Suspect]
     Active Substance: CROVALIMAB-AKKZ
     Indication: Paroxysmal nocturnal haemoglobinuria
     Dosage: 340 MILLIGRAM
     Route: 042
     Dates: start: 20240805, end: 20240805
  2. PIASKY [Suspect]
     Active Substance: CROVALIMAB-AKKZ
     Route: 050
     Dates: start: 20240806, end: 20240826
  3. PIASKY [Suspect]
     Active Substance: CROVALIMAB-AKKZ
     Route: 050
     Dates: start: 20241021, end: 20241021

REACTIONS (7)
  - Cellulitis [Recovered/Resolved]
  - Haemorrhage subcutaneous [Recovered/Resolved]
  - Haemoglobin decreased [Recovering/Resolving]
  - Oedema peripheral [Recovering/Resolving]
  - Anaemia [Recovering/Resolving]
  - Off label use [Unknown]
  - Pleural effusion [Unknown]

NARRATIVE: CASE EVENT DATE: 20240902
